FAERS Safety Report 14528905 (Version 1)
Quarter: 2018Q1

REPORT INFORMATION
  Report Type: Spontaneous
  Country: IT (occurrence: IT)
  Receive Date: 20180214
  Receipt Date: 20180214
  Transmission Date: 20180509
  Serious: Yes (Other)
  Sender: FDA-Public Use
  Company Number: IT-ROCHE-2066898

PATIENT
  Age: 74 Year
  Sex: Female

DRUGS (2)
  1. TYVERB [Suspect]
     Active Substance: LAPATINIB
     Indication: BREAST NEOPLASM
     Dosage: TYVERB 250 MG FILM-COATED TABLETS
     Route: 048
     Dates: start: 20171019
  2. CAPECITABINE. [Suspect]
     Active Substance: CAPECITABINE
     Indication: BREAST NEOPLASM
     Route: 048

REACTIONS (3)
  - Limb injury [Recovering/Resolving]
  - Blood bilirubin increased [Recovering/Resolving]
  - Diarrhoea [Recovering/Resolving]

NARRATIVE: CASE EVENT DATE: 20171108
